FAERS Safety Report 11005209 (Version 1)
Quarter: 2015Q2

REPORT INFORMATION
  Report Type: Spontaneous
  Country: DE (occurrence: DE)
  Receive Date: 20150409
  Receipt Date: 20150409
  Transmission Date: 20150821
  Serious: Yes (Other)
  Sender: FDA-Public Use
  Company Number: GXKR2015DE001870

PATIENT

DRUGS (5)
  1. DEXAMETASON [Suspect]
     Active Substance: DEXAMETHASONE
     Indication: PROPHYLAXIS
     Dosage: 8 MG, TID
     Route: 048
     Dates: start: 20150202
  2. TEMOZO CELL [Suspect]
     Active Substance: TEMOZOLOMIDE
     Indication: GLIOBLASTOMA
     Dosage: 125 MG, UNK
     Route: 048
     Dates: start: 20150202, end: 20150303
  3. SULFAMETHOXAZOLE AND TRIMETHOPRIM [Suspect]
     Active Substance: SULFAMETHOXAZOLE\TRIMETHOPRIM
     Indication: ANTIFUNGAL PROPHYLAXIS
     Dosage: DAILY DOSE: 500 MG MILLGRAM(S) EVERY DAYS
     Route: 048
     Dates: start: 20150202
  4. PANTOZOL [Suspect]
     Active Substance: PANTOPRAZOLE SODIUM
     Indication: PROPHYLAXIS
     Dosage: 40 MG, QD
     Route: 048
     Dates: start: 20150202
  5. GRANISETRON [Suspect]
     Active Substance: GRANISETRON
     Indication: NAUSEA
     Dosage: 2 MG, UNK
     Route: 048
     Dates: start: 20150202, end: 20150303

REACTIONS (2)
  - Leukopenia [Not Recovered/Not Resolved]
  - Thrombocytopenia [Not Recovered/Not Resolved]

NARRATIVE: CASE EVENT DATE: 20150303
